FAERS Safety Report 8190462-9 (Version None)
Quarter: 2012Q1

REPORT INFORMATION
  Report Type: 
  Country: None (occurrence: None)
  Receive Date: 20120305
  Receipt Date: 20120222
  Transmission Date: 20120608
  Serious: Yes (Disabling, Other)
  Sender: FDA-Public Use
  Company Number: 2012MA002384

PATIENT
  Age: 69 Year
  Sex: Female
  Weight: 69.8539 kg

DRUGS (6)
  1. GABAPENTIN [Suspect]
     Indication: MYALGIA
     Dosage: ;PO
     Route: 048
  2. GABAPENTIN [Suspect]
     Indication: NEURALGIA
     Dosage: ;PO
     Route: 048
  3. LYRICA [Suspect]
     Indication: ARTHRITIS
     Dosage: 75 MG;BID;
  4. LYRICA [Suspect]
     Indication: FIBROMYALGIA
     Dosage: 75 MG;BID;
  5. TYLENOL [Suspect]
  6. WARFARIN SODIUM [Suspect]
     Indication: PAIN

REACTIONS (10)
  - DRUG INTERACTION [None]
  - PAIN [None]
  - BLOOD DISORDER [None]
  - CHOKING [None]
  - LETHARGY [None]
  - PROTHROMBIN TIME PROLONGED [None]
  - DYSPNOEA [None]
  - EPISTAXIS [None]
  - DRUG INEFFECTIVE [None]
  - ACTIVITIES OF DAILY LIVING IMPAIRED [None]
